FAERS Safety Report 24608548 (Version 2)
Quarter: 2024Q4

REPORT INFORMATION
  Report Type: Report from Study
  Country: US (occurrence: US)
  Receive Date: 20241112
  Receipt Date: 20241202
  Transmission Date: 20250115
  Serious: Yes (Other)
  Sender: ABBVIE
  Company Number: US-ABBVIE-5997111

PATIENT
  Sex: Female

DRUGS (1)
  1. SKYRIZI [Suspect]
     Active Substance: RISANKIZUMAB-RZAA
     Indication: Crohn^s disease
     Dosage: UNKNOWN?FREQUENCY TEXT: ONCE EVERY 50 DAYS
     Route: 058
     Dates: start: 20230120

REACTIONS (2)
  - Hepatic cirrhosis [Unknown]
  - Nausea [Recovered/Resolved]
